FAERS Safety Report 15271765 (Version 1)
Quarter: 2018Q3

REPORT INFORMATION
  Report Type: Spontaneous
  Country: US (occurrence: US)
  Receive Date: 20180727
  Receipt Date: 20180727
  Transmission Date: 20181010
  Serious: No
  Sender: FDA-Public Use
  Company Number: None

PATIENT
  Age: 35 Year
  Sex: Male
  Weight: 51.75 kg

DRUGS (1)
  1. MIRENA [Suspect]
     Active Substance: LEVONORGESTREL
     Indication: CONTRACEPTION
     Dates: start: 20180301, end: 20180523

REACTIONS (6)
  - Alopecia [None]
  - Vaginal haemorrhage [None]
  - Anxiety [None]
  - Depression [None]
  - Migraine [None]
  - Bacterial vaginosis [None]

NARRATIVE: CASE EVENT DATE: 20180402
